FAERS Safety Report 18017920 (Version 2)
Quarter: 2022Q2

REPORT INFORMATION
  Report Type: Spontaneous
  Country: DE (occurrence: DE)
  Receive Date: 20200713
  Receipt Date: 20220407
  Transmission Date: 20220721
  Serious: Yes (Other)
  Sender: FDA-Public Use
  Company Number: DE-CELLTRION INC.-2020DE024051

PATIENT

DRUGS (26)
  1. RITUXIMAB [Suspect]
     Active Substance: RITUXIMAB
     Indication: Burkitt^s lymphoma stage IV
     Dosage: 375 MG/M2, OVER 3 HOURS ON DAY 1 PRENATAL PHASE
     Route: 042
  2. RITUXIMAB [Suspect]
     Active Substance: RITUXIMAB
     Dosage: 375 MG/M2, OVER 3-HOURS ON DAY 7 POSTNATAL PHASE
     Route: 042
  3. CYCLOPHOSPHAMIDE [Suspect]
     Active Substance: CYCLOPHOSPHAMIDE
     Indication: Burkitt^s lymphoma stage IV
     Dosage: 750 MG/M2, OVER 1 HOUR ON DAY 2
     Route: 042
  4. CYCLOPHOSPHAMIDE [Suspect]
     Active Substance: CYCLOPHOSPHAMIDE
     Dosage: 200 MG/M2 ON DAYS 1-5
  5. DOXORUBICIN [Suspect]
     Active Substance: DOXORUBICIN
     Indication: Burkitt^s lymphoma stage IV
     Dosage: OVER 30 MINUTES ON DAY 2
     Route: 042
  6. VINCRISTINE [Suspect]
     Active Substance: VINCRISTINE
     Indication: Burkitt^s lymphoma stage IV
     Dosage: 2 MG, ON DAY 2
     Route: 040
  7. VINCRISTINE [Suspect]
     Active Substance: VINCRISTINE
     Dosage: 2 MG, ON DAY 8
     Route: 040
  8. ETOPOSIDE [Suspect]
     Active Substance: ETOPOSIDE
     Indication: Burkitt^s lymphoma stage IV
     Dosage: 100 MG/M2.OVER 1 HOUR ON DAYS 2-4 PRENATAL PHASE
     Route: 042
  9. ETOPOSIDE [Suspect]
     Active Substance: ETOPOSIDE
     Dosage: 100 MG/M2.OVER 1 HOUR ON DAYS 11-12 POSTNATAL PHASE
     Route: 042
  10. PREDNISOLONE [Suspect]
     Active Substance: PREDNISOLONE
     Indication: Burkitt^s lymphoma stage IV
     Dosage: 100 MG, ON DAYS 2-5 PRENATAL PHASE
     Route: 048
  11. PREDNISOLONE [Suspect]
     Active Substance: PREDNISOLONE
     Dosage: 60 MG/M2 ON DAYS 1-5 POSTNATAL PHASE
  12. FILGRASTIM [Suspect]
     Active Substance: FILGRASTIM
     Indication: Supportive care
     Dosage: 10 MICROGRAM/KILOGRAM,ON DAYS 6-11 PRENATAL PHASE
     Route: 058
  13. FILGRASTIM [Suspect]
     Active Substance: FILGRASTIM
     Dosage: 10 MICROGRAM/KILOGRAM,ON DAYS 11-16 POSTNATAL PHASE
     Route: 058
  14. MESNA [Suspect]
     Active Substance: MESNA
     Indication: Burkitt^s lymphoma stage IV
     Dosage: 200 MG/M2, AT 0, 4, AND 8 HOURS AFTER CPA DAY 2 PRENATAL PHASE
     Route: 042
  15. MESNA [Suspect]
     Active Substance: MESNA
     Dosage: 200 MG/M2, AT 0, 4, AND 8 HOURS AFTER IFO ON DAYS 8-12 POSTNATAL PHASE
     Route: 042
  16. DEXAMETHASONE [Suspect]
     Active Substance: DEXAMETHASONE
     Indication: Burkitt^s lymphoma stage IV
     Dosage: 4 MG, ON DAYS 2 AND 6 PRENATAL PHASE
     Route: 037
  17. DEXAMETHASONE [Suspect]
     Active Substance: DEXAMETHASONE
     Indication: Prophylaxis
     Dosage: 4 MG, ON DAYS 8 AND 12 POSTNATAL PHASE
     Route: 037
  18. DEXAMETHASONE [Suspect]
     Active Substance: DEXAMETHASONE
     Dosage: 10 MG/M2 ON DAYS 11-12 POSTNATAL PHASE
     Route: 048
  19. IFOSFAMIDE [Suspect]
     Active Substance: IFOSFAMIDE
     Indication: Burkitt^s lymphoma stage IV
     Dosage: 800 MG/M2 OVER 1-HOUR ON DAYS 8-12 POSTNATAL PHASE
     Route: 042
  20. METHOTREXATE [Suspect]
     Active Substance: METHOTREXATE
     Indication: Burkitt^s lymphoma stage IV
     Dosage: 1.500 MG/M2, 24-HOURS-INFUSION ON DAY 8 POSTNATAL PHASE
     Route: 042
  21. METHOTREXATE [Suspect]
     Active Substance: METHOTREXATE
     Indication: Prophylaxis
     Dosage: 15 MG, ON DAYS 8 AND 12 POSTNATAL PHASE
     Route: 037
  22. CYTARABINE [Concomitant]
     Active Substance: CYTARABINE
     Indication: Burkitt^s lymphoma stage IV
     Dosage: 40 MG,ON DAYS 2 AND 6 PRENATAL PHASE
     Route: 037
  23. CYTARABINE [Concomitant]
     Active Substance: CYTARABINE
     Indication: Prophylaxis
     Dosage: 150 MG/M2, OVER 1 HOUR EVERY 12 HOURS ON DAYS 2-6 PRENATAL PHASE
     Route: 042
  24. CYTARABINE [Concomitant]
     Active Substance: CYTARABINE
     Dosage: 150 MG/M2, OVER 1 HOUR EVERY 12 HOURS ON DAYS 111-12 POSTNATAL PHASE
     Route: 042
  25. CYTARABINE [Concomitant]
     Active Substance: CYTARABINE
     Dosage: 40 MG,ON DAYS 8 AND 12 POSTNATAL PHASE
     Route: 037
  26. LEUCOVORIN CALCIUM [Concomitant]
     Active Substance: LEUCOVORIN CALCIUM
     Dosage: 50 MG, EVERY 6 HOURS (IF SERUM MTX LEVELS ARE: } 20 UMOL/L AT THE END OF MTX INFUSION (HOUR 24); } 1

REACTIONS (5)
  - Amniocentesis abnormal [Recovered/Resolved]
  - Premature delivery [Unknown]
  - Biopsy ovary abnormal [Recovered/Resolved]
  - Maternal exposure during pregnancy [Unknown]
  - Off label use [Unknown]
